FAERS Safety Report 14950642 (Version 1)
Quarter: 2018Q2

REPORT INFORMATION
  Report Type: Spontaneous
  Country: FR (occurrence: FR)
  Receive Date: 20180530
  Receipt Date: 20180530
  Transmission Date: 20180711
  Serious: Yes (Other)
  Sender: FDA-Public Use
  Company Number: FR-MERCK KGAA-2048654

PATIENT
  Age: 73 Year
  Sex: Female
  Weight: 56 kg

DRUGS (1)
  1. NOVOTHYROX [Suspect]
     Active Substance: LEVOTHYROXINE SODIUM
     Indication: THYROIDECTOMY
     Route: 048
     Dates: start: 2017, end: 2017

REACTIONS (12)
  - Arthralgia [Recovered/Resolved]
  - Flatulence [Recovered/Resolved]
  - Diffuse alopecia [Recovered/Resolved]
  - Acne [Recovered/Resolved]
  - Insomnia [Recovered/Resolved]
  - Vertigo [Recovered/Resolved]
  - Hot flush [Recovered/Resolved]
  - Weight increased [Not Recovered/Not Resolved]
  - Nausea [Recovered/Resolved]
  - Myalgia [Recovered/Resolved]
  - Abdominal distension [Recovered/Resolved]
  - Fatigue [Not Recovered/Not Resolved]

NARRATIVE: CASE EVENT DATE: 201704
